FAERS Safety Report 9394941 (Version 2)
Quarter: 2013Q3

REPORT INFORMATION
  Report Type: Report from Study
  Country: CA (occurrence: CA)
  Receive Date: 20130711
  Receipt Date: 20130719
  Transmission Date: 20140515
  Serious: Yes (Hospitalization)
  Sender: FDA-Public Use
  Company Number: CA-JNJFOC-20130705357

PATIENT
  Age: 37 Year
  Sex: Male
  Weight: 73.48 kg

DRUGS (2)
  1. REMICADE [Suspect]
     Indication: CROHN^S DISEASE
     Route: 042
     Dates: start: 2011
  2. VITAMIN B 12 [Concomitant]
     Route: 065

REACTIONS (1)
  - Intestinal resection [Recovering/Resolving]
